FAERS Safety Report 4641103-6 (Version None)
Quarter: 2005Q2

REPORT INFORMATION
  Report Type: 
  Country: None (occurrence: None)
  Receive Date: 20050421
  Receipt Date: 20050412
  Transmission Date: 20051028
  Serious: Yes (Hospitalization)
  Sender: FDA-Public Use
  Company Number: US-ABBOTT-05P-163-0297149-00

PATIENT
  Sex: Female
  Weight: 62.652 kg

DRUGS (9)
  1. SYNTHROID [Suspect]
     Indication: HORMONE REPLACEMENT THERAPY
     Route: 048
     Dates: start: 20010621, end: 20050201
  2. SYNTHROID [Suspect]
     Route: 048
     Dates: start: 19860101, end: 20010619
  3. LEVOTHYROXINE SODIUM [Suspect]
     Indication: HORMONE REPLACEMENT THERAPY
     Route: 048
     Dates: start: 20050201
  4. BUMETANIDE [Concomitant]
     Indication: DIURETIC THERAPY
     Route: 048
  5. DIOVAN [Concomitant]
     Indication: BLOOD PRESSURE
     Route: 048
  6. DIGOXIN [Concomitant]
     Indication: CARDIAC DISORDER
     Route: 048
  7. ASPIRIN [Concomitant]
     Indication: MIGRAINE
     Route: 048
  8. INSULIN LISPRO [Concomitant]
     Indication: DIABETES MELLITUS
     Route: 058
     Dates: start: 20020101
  9. LANTIS [Concomitant]
     Indication: DIABETES MELLITUS
     Dosage: SLIDING SCALE
     Route: 058
     Dates: start: 20050101

REACTIONS (9)
  - DIZZINESS [None]
  - DYSPNOEA [None]
  - FALL [None]
  - LIP BLISTER [None]
  - MYALGIA [None]
  - RASH GENERALISED [None]
  - RASH PRURITIC [None]
  - SPINAL FRACTURE [None]
  - WEIGHT DECREASED [None]
